FAERS Safety Report 20082726 (Version 2)
Quarter: 2021Q4

REPORT INFORMATION
  Report Type: Report from Study
  Country: ES (occurrence: ES)
  Receive Date: 20211117
  Receipt Date: 20211130
  Transmission Date: 20220303
  Serious: Yes (Death, Hospitalization, Other)
  Sender: FDA-Public Use
  Company Number: ES-JNJFOC-20210751168

PATIENT
  Age: 83 Year
  Sex: Male
  Weight: 77 kg

DRUGS (10)
  1. DEXAMETHASONE [Suspect]
     Active Substance: DEXAMETHASONE
     Indication: Plasma cell myeloma
     Dosage: UNK
     Route: 065
     Dates: start: 20191122
  2. REVLIMID [Suspect]
     Active Substance: LENALIDOMIDE
     Indication: Plasma cell myeloma
     Dosage: UNK
     Route: 065
     Dates: start: 20191122, end: 20191203
  3. DARATUMUMAB [Suspect]
     Active Substance: DARATUMUMAB
     Indication: Plasma cell myeloma
     Dosage: 1232 MILLIGRAM, QW
     Route: 042
     Dates: start: 20191122, end: 20191226
  4. GLIMEPIRIDE [Concomitant]
     Active Substance: GLIMEPIRIDE
     Indication: Type 2 diabetes mellitus
     Dosage: UNK
  5. BISOPROLOL [Concomitant]
     Active Substance: BISOPROLOL
     Indication: Myocardial ischaemia
     Dosage: UNK
  6. RAMIPRIL [Concomitant]
     Active Substance: RAMIPRIL
     Indication: Myocardial ischaemia
     Dosage: UNK
  7. CANDESARTAN [Concomitant]
     Active Substance: CANDESARTAN
     Indication: Myocardial ischaemia
     Dosage: UNK
  8. ATORVASTATIN [Concomitant]
     Active Substance: ATORVASTATIN
     Indication: Myocardial ischaemia
     Dosage: UNK
  9. ATERINA [Concomitant]
     Indication: Myocardial ischaemia
     Dosage: UNK
  10. FUROSEMIDE [Concomitant]
     Active Substance: FUROSEMIDE
     Indication: Renal failure
     Dosage: UNK

REACTIONS (9)
  - Respiratory tract infection [Fatal]
  - Chronic kidney disease [Fatal]
  - Cardiac failure congestive [Fatal]
  - Atrial fibrillation [Fatal]
  - Respiratory failure [Fatal]
  - Aspiration [Fatal]
  - Plasma cell myeloma [Fatal]
  - Neutropenia [Fatal]
  - Clostridium difficile colitis [Fatal]

NARRATIVE: CASE EVENT DATE: 20191203
